FAERS Safety Report 15957606 (Version 1)
Quarter: 2019Q1

REPORT INFORMATION
  Report Type: Spontaneous
  Country: US (occurrence: US)
  Receive Date: 20190213
  Receipt Date: 20190213
  Transmission Date: 20190417
  Serious: No
  Sender: FDA-Public Use
  Company Number: None

PATIENT
  Age: 55 Year
  Sex: Female
  Weight: 128.7 kg

DRUGS (1)
  1. LORAZEPAM 1MG TABLET [Suspect]
     Active Substance: LORAZEPAM
     Indication: FEELING OF RELAXATION
     Dosage: ?          QUANTITY:1 TABLET(S);OTHER FREQUENCY:2 DAILY AS NEEDED;?
     Route: 048
     Dates: start: 20190204

REACTIONS (5)
  - Heart rate increased [None]
  - Product solubility abnormal [None]
  - Drug ineffective [None]
  - Tinnitus [None]
  - Flatulence [None]

NARRATIVE: CASE EVENT DATE: 20190213
